FAERS Safety Report 8373609-0 (Version None)
Quarter: 2012Q2

REPORT INFORMATION
  Report Type: 
  Country: None (occurrence: None)
  Receive Date: 20120521
  Receipt Date: 20120201
  Transmission Date: 20120825
  Serious: No
  Sender: FDA-Public Use
  Company Number: US-TEVA-320471USA

PATIENT
  Sex: Male
  Weight: 91.708 kg

DRUGS (5)
  1. ALLOPURINOL [Concomitant]
     Indication: BLOOD URIC ACID ABNORMAL
     Route: 048
     Dates: start: 20111201
  2. FISH OIL [Concomitant]
     Indication: SUPPLEMENTATION THERAPY
     Route: 048
  3. NEUPOGEN [Concomitant]
     Indication: WHITE BLOOD CELL COUNT ABNORMAL
     Route: 058
  4. TREANDA [Suspect]
     Route: 042
     Dates: start: 20120103
  5. TREANDA [Suspect]
     Indication: CHRONIC LYMPHOCYTIC LEUKAEMIA
     Route: 042
     Dates: start: 20120103

REACTIONS (3)
  - WHITE BLOOD CELL COUNT DECREASED [None]
  - PLATELET COUNT DECREASED [None]
  - RED BLOOD CELL COUNT DECREASED [None]
